FAERS Safety Report 11703901 (Version 1)
Quarter: 2015Q4

REPORT INFORMATION
  Report Type: Spontaneous
  Country: US (occurrence: None)
  Receive Date: 20151105
  Receipt Date: 20151105
  Transmission Date: 20160304
  Serious: No
  Sender: FDA-Public Use
  Company Number: None

PATIENT
  Age: 53 Year
  Sex: Female
  Weight: 85.73 kg

DRUGS (9)
  1. LISPIRIOL [Concomitant]
  2. NORIVIR [Concomitant]
  3. OXYCODONE [Concomitant]
     Active Substance: OXYCODONE
  4. MORPHINE [Concomitant]
     Active Substance: MORPHINE
  5. CIPROFLOXACIN. [Suspect]
     Active Substance: CIPROFLOXACIN
     Indication: URINARY TRACT INFECTION
     Dosage: 1 TAB EVERY 12 HOURS
     Route: 048
     Dates: start: 20151103
  6. METFORMIN [Concomitant]
     Active Substance: METFORMIN HYDROCHLORIDE
  7. RAYETAZ [Concomitant]
  8. EPZICOM [Concomitant]
     Active Substance: ABACAVIR SULFATE\LAMIVUDINE
  9. LYRICA [Concomitant]
     Active Substance: PREGABALIN

REACTIONS (2)
  - Swelling [None]
  - Pruritus [None]

NARRATIVE: CASE EVENT DATE: 20151103
